FAERS Safety Report 18840858 (Version 1)
Quarter: 2021Q1

REPORT INFORMATION
  Report Type: Spontaneous
  Country: IN (occurrence: IN)
  Receive Date: 20210203
  Receipt Date: 20210203
  Transmission Date: 20210419
  Serious: Yes (Hospitalization, Other)
  Sender: FDA-Public Use
  Company Number: IN-GLAXOSMITHKLINE-INCH2021APC002189

PATIENT
  Age: 62 Year
  Sex: Female
  Weight: 48 kg

DRUGS (3)
  1. DICLOFENAC SODIUM. [Suspect]
     Active Substance: DICLOFENAC SODIUM
     Indication: PYODERMA
     Dosage: 50 MG, BID
     Route: 048
     Dates: start: 20210106, end: 20210112
  2. DACOMITINIB [Concomitant]
     Active Substance: DACOMITINIB
     Indication: EGFR GENE MUTATION
     Dosage: 45 MG, ONCE A DAY
     Route: 048
     Dates: start: 20201111, end: 20210105
  3. AMOXICILLIN AND CLAVULANATE POTASSIUM [Suspect]
     Active Substance: AMOXICILLIN\CLAVULANATE POTASSIUM
     Indication: PYODERMA
     Dosage: 625 MG, TID
     Route: 048
     Dates: start: 20210106, end: 20210112

REACTIONS (2)
  - Fatigue [Recovering/Resolving]
  - Acute kidney injury [Recovering/Resolving]

NARRATIVE: CASE EVENT DATE: 20210115
